FAERS Safety Report 4606549-0 (Version None)
Quarter: 2005Q2

REPORT INFORMATION
  Report Type: 
  Country: None (occurrence: None)
  Receive Date: 20050223
  Receipt Date: 20040826
  Transmission Date: 20051028
  Serious: Yes (Disabling)
  Sender: FDA-Public Use
  Company Number: WAES 0408USA02128

PATIENT
  Age: 76 Year
  Sex: Female

DRUGS (2)
  1. ZOCOR [Suspect]
     Indication: BLOOD CHOLESTEROL INCREASED
     Dosage: 40 MG/DAILY/PO
     Route: 048
     Dates: start: 19940101, end: 20040701
  2. ENALAPRIL MALEATE [Concomitant]

REACTIONS (3)
  - MUSCLE DISORDER [None]
  - MUSCULAR WEAKNESS [None]
  - MYALGIA [None]
